FAERS Safety Report 25361012 (Version 1)
Quarter: 2025Q2

REPORT INFORMATION
  Report Type: Spontaneous
  Country: US (occurrence: US)
  Receive Date: 20250527
  Receipt Date: 20250527
  Transmission Date: 20250717
  Serious: Yes (Other)
  Sender: AMGEN
  Company Number: US-AMGEN-USASP2025100874

PATIENT
  Age: 66 Year
  Sex: Female

DRUGS (2)
  1. PREDNISONE [Suspect]
     Active Substance: PREDNISONE
     Indication: Colitis
     Route: 048
  2. USTEKINUMAB [Concomitant]
     Active Substance: USTEKINUMAB

REACTIONS (3)
  - Colitis [Unknown]
  - Enterovesical fistula [Unknown]
  - Apoptosis [Unknown]
